FAERS Safety Report 15130903 (Version 1)
Quarter: 2018Q3

REPORT INFORMATION
  Report Type: Spontaneous
  Country: US (occurrence: US)
  Receive Date: 20180711
  Receipt Date: 20180711
  Transmission Date: 20181010
  Serious: No
  Sender: FDA-Public Use
  Company Number: US-ACTELION-A-US2018-175135

PATIENT
  Age: 57 Year
  Sex: Female

DRUGS (1)
  1. OPSUMIT [Suspect]
     Active Substance: MACITENTAN
     Indication: PULMONARY ARTERIAL HYPERTENSION
     Dosage: 10 MG, QD
     Route: 048
     Dates: start: 20180428

REACTIONS (6)
  - Diarrhoea [Unknown]
  - Pain in jaw [Unknown]
  - Headache [Unknown]
  - Myalgia [Unknown]
  - Nausea [Unknown]
  - Flushing [Unknown]

NARRATIVE: CASE EVENT DATE: 20180625
